FAERS Safety Report 14324035 (Version 10)
Quarter: 2019Q2

REPORT INFORMATION
  Report Type: Spontaneous
  Country: IT (occurrence: IT)
  Receive Date: 20171226
  Receipt Date: 20190604
  Transmission Date: 20190711
  Serious: Yes (Death, Hospitalization, Other)
  Sender: FDA-Public Use
  Company Number: IT-MYLANLABS-M-EU-2016070358

PATIENT
  Age: 82 Year
  Sex: Female

DRUGS (15)
  1. FENTANYL. [Suspect]
     Active Substance: FENTANYL
     Dosage: 12 ?G, QH
     Route: 062
     Dates: start: 20150521, end: 20150528
  2. FENTANYL. [Suspect]
     Active Substance: FENTANYL
     Dosage: 200 ?G, UNK
     Route: 062
     Dates: start: 2015, end: 20150602
  3. VANCOMYCIN [Concomitant]
     Active Substance: VANCOMYCIN
     Dosage: UNK
     Route: 061
  4. FENTANYL. [Suspect]
     Active Substance: FENTANYL
     Indication: PAIN
     Dosage: 25 ?G, QH
     Route: 062
     Dates: start: 20150528, end: 20150602
  5. RIFAMPICIN [Interacting]
     Active Substance: RIFAMPIN
     Indication: STAPHYLOCOCCAL INFECTION
     Dosage: 300 MG, QD
     Route: 042
     Dates: start: 2015
  6. VANCOMYCIN [Concomitant]
     Active Substance: VANCOMYCIN
     Dosage: 1 GRAM (LOADING DOSE)
     Route: 042
     Dates: start: 2015
  7. FENTANYL. [Suspect]
     Active Substance: FENTANYL
     Dosage: 100 UG, FOR PAIN DURING DIALYSIS, WHICH COULD BE INCREASED TO UP TO 200MCG
     Route: 062
  8. LEVOFLOXACIN. [Interacting]
     Active Substance: LEVOFLOXACIN
     Dosage: 125 MG, QD,MAINTENANCE DOSE
     Route: 048
     Dates: start: 2015
  9. FENTANYL. [Suspect]
     Active Substance: FENTANYL
     Indication: PAIN IN EXTREMITY
     Dosage: 100 ?G, UNK
     Dates: start: 2015, end: 20150602
  10. VANCOMYCIN [Concomitant]
     Active Substance: VANCOMYCIN
     Dosage: UNK
     Route: 061
  11. FENTANYL. [Suspect]
     Active Substance: FENTANYL
     Dosage: 200 ?G, UNK
  12. VANCOMYCIN [Concomitant]
     Active Substance: VANCOMYCIN
     Indication: STAPHYLOCOCCAL INFECTION
     Dosage: 500 MG, UNK (MAINTENANCE DOSE; AT THE END OF DIALYSIS)
     Route: 042
     Dates: start: 2015
  13. VANCOMYCIN [Concomitant]
     Active Substance: VANCOMYCIN
     Dosage: UNK (BY A SWAB APPLIED TO A LEFT FOOT ULCER POSITIVE FOR STAPHYLOCOCCUS AUREUS)
     Route: 061
     Dates: start: 2015
  14. FENTANYL. [Suspect]
     Active Substance: FENTANYL
     Dosage: 100 ?G, UNK
     Route: 062
     Dates: start: 20150602, end: 20150602
  15. LEVOFLOXACIN. [Interacting]
     Active Substance: LEVOFLOXACIN
     Indication: STAPHYLOCOCCAL SKIN INFECTION
     Dosage: 500 MG, TOTAL (LOADING DOSE)
     Route: 048
     Dates: start: 20150521, end: 20150521

REACTIONS (20)
  - Sopor [Recovered/Resolved]
  - Prescribed overdose [Fatal]
  - Toxicity to various agents [Unknown]
  - Hallucination [Unknown]
  - Tremor [Unknown]
  - Depressed level of consciousness [Recovering/Resolving]
  - Off label use [Unknown]
  - Miosis [Unknown]
  - Labelled drug-drug interaction medication error [Unknown]
  - Altered state of consciousness [Recovering/Resolving]
  - Sepsis [Fatal]
  - Pyrexia [Fatal]
  - Status epilepticus [Recovered/Resolved]
  - Somnolence [Recovered/Resolved]
  - Drug interaction [Unknown]
  - Overdose [Unknown]
  - Therapy naive [Unknown]
  - Product use in unapproved indication [Unknown]
  - Generalised non-convulsive epilepsy [Fatal]
  - Drug ineffective [Unknown]

NARRATIVE: CASE EVENT DATE: 2015
